FAERS Safety Report 26063176 (Version 3)
Quarter: 2025Q4

REPORT INFORMATION
  Report Type: Spontaneous
  Country: JP (occurrence: JP)
  Receive Date: 20251119
  Receipt Date: 20251211
  Transmission Date: 20260118
  Serious: Yes (Hospitalization)
  Sender: SANOFI AVENTIS
  Company Number: JP-SA-2025SA342579

PATIENT
  Age: 11 Month
  Sex: Male

DRUGS (7)
  1. BEYFORTUS [Suspect]
     Active Substance: NIRSEVIMAB-ALIP
     Indication: Antiviral prophylaxis
     Dosage: 50 MG, 1X
     Route: 030
     Dates: start: 20250326, end: 20250326
  2. PRANLUKAST [Concomitant]
     Active Substance: PRANLUKAST
     Indication: Chronic respiratory disease
     Dosage: 12.5 MG, BID, AFTER BREAKFAST AND SUPPER
     Route: 065
     Dates: start: 20250213
  3. ERYTHROCIN [ERYTHROMYCIN ETHYLSUCCINATE] [Concomitant]
     Indication: Chronic respiratory disease
     Dosage: 17.5 MG, BID, AFTER BREAKFAST AND SUPPER
     Route: 048
     Dates: start: 20250213
  4. CARBOCYSTEINE [Concomitant]
     Active Substance: CARBOCYSTEINE
     Indication: Chronic respiratory disease
     Dosage: 30 MG, TID
     Route: 048
     Dates: start: 20250213
  5. AMBROXOL HYDROCHLORIDE [Concomitant]
     Active Substance: AMBROXOL HYDROCHLORIDE
     Indication: Chronic respiratory disease
     Dosage: 1 MG, TID
     Route: 048
     Dates: start: 20250213
  6. LEVOTHYROXINE SODIUM [Concomitant]
     Active Substance: LEVOTHYROXINE SODIUM
     Indication: Hypothyroidism
     Dosage: 5 UG, QD, AFTER LUNCH
     Route: 048
     Dates: start: 20241205
  7. FERRIC PYROPHOSPHATE [Concomitant]
     Active Substance: FERRIC PYROPHOSPHATE
     Indication: Anaemia
     Dosage: 1 ML, BID
     Route: 048
     Dates: start: 20241205

REACTIONS (2)
  - Respiratory syncytial virus infection [Recovering/Resolving]
  - Therapeutic response decreased [Recovering/Resolving]

NARRATIVE: CASE EVENT DATE: 20251014
